FAERS Safety Report 5176525-0 (Version None)
Quarter: 2006Q4

REPORT INFORMATION
  Report Type: 
  Country: None (occurrence: None)
  Receive Date: 20061207
  Receipt Date: 20061121
  Transmission Date: 20070319
  Serious: Yes (Hospitalization)
  Sender: FDA-Public Use
  Company Number: 2006002207

PATIENT
  Age: 55 Year
  Sex: Male

DRUGS (2)
  1. ERLOTINIB (TABLET) [Suspect]
     Indication: NON-SMALL CELL LUNG CANCER
     Dosage: 150 MG  (QD), ORAL
     Route: 048
     Dates: start: 20060703
  2. BEVACIZUMAB (INJECTION FOR INFUSION) [Suspect]
     Indication: NON-SMALL CELL LUNG CANCER
     Dosage: 1140 MG (Q 3 WK), INTRAVENOUS
     Route: 042
     Dates: start: 20060703, end: 20061017

REACTIONS (2)
  - CONDITION AGGRAVATED [None]
  - PAIN [None]
